FAERS Safety Report 17478938 (Version 9)
Quarter: 2021Q3

REPORT INFORMATION
  Report Type: Report from Study
  Country: DE (occurrence: DE)
  Receive Date: 20200228
  Receipt Date: 20210917
  Transmission Date: 20211014
  Serious: Yes (Life-Threatening, Hospitalization, Other)
  Sender: FDA-Public Use
  Company Number: DE-MYLANLABS-2020M1013314

PATIENT
  Age: 63 Year
  Sex: Female
  Weight: 73 kg

DRUGS (15)
  1. KISQALI [Suspect]
     Active Substance: RIBOCICLIB
     Indication: BREAST CANCER METASTATIC
     Dosage: 600 MG, QD (SCHEMA 21 DAYS INTAKE, 7 DAYS PAUSE)
     Route: 048
     Dates: start: 20191106, end: 20191123
  2. MACROGOL [Concomitant]
     Active Substance: POLYETHYLENE GLYCOLS
     Indication: CONSTIPATION
     Dosage: 1 DOSAGE FORM, QD
     Route: 048
     Dates: start: 20191023
  3. ANASTROZOLE. [Suspect]
     Active Substance: ANASTROZOLE
     Indication: BREAST CANCER METASTATIC
     Dosage: 1 MILLIGRAM, QD
     Route: 048
     Dates: start: 20191106, end: 20191123
  4. FULVESTRANT. [Suspect]
     Active Substance: FULVESTRANT
     Dosage: 600 MG, QD (SCHEMA 21 DAYS INTAKE, 7 DAYS PAUSE)
     Route: 030
     Dates: start: 20200106, end: 20200106
  5. DEXAMETHASONE. [Concomitant]
     Active Substance: DEXAMETHASONE
     Dosage: 1 DOSAGE FORM, QD (0.5 DF, BID)
     Route: 048
     Dates: start: 20191016
  6. XGEVA [Concomitant]
     Active Substance: DENOSUMAB
     Indication: PRODUCT USED FOR UNKNOWN INDICATION
     Dosage: 120 MILLIGRAM
     Route: 065
     Dates: start: 20200117
  7. OXYCODONE [Concomitant]
     Active Substance: OXYCODONE
     Indication: PAIN
     Dosage: 10 MILLIGRAM, QD
     Route: 048
     Dates: start: 20191030
  8. NOVALGIN (METAMIZOLE SODIUM) [Concomitant]
     Active Substance: METAMIZOLE SODIUM
     Indication: PAIN
     Dosage: 2000 MILLIGRAM, QD 500 MG, QID
     Route: 048
     Dates: start: 20191016
  9. FULVESTRANT. [Suspect]
     Active Substance: FULVESTRANT
     Indication: BREAST CANCER METASTATIC
     Dosage: 250 MILLIGRAM, Q28D
     Route: 030
     Dates: start: 20200106, end: 20200106
  10. PIPERACILLIN/TAZOBACTAM [Suspect]
     Active Substance: PIPERACILLIN SODIUM\TAZOBACTAM SODIUM
     Indication: PRODUCT USED FOR UNKNOWN INDICATION
     Dosage: 3 DF, TID
     Route: 065
     Dates: start: 20191124, end: 20191129
  11. PIPERACILLIN/TAZOBACTAM [Suspect]
     Active Substance: PIPERACILLIN SODIUM\TAZOBACTAM SODIUM
     Dosage: TID
     Route: 065
     Dates: start: 20191124, end: 20191129
  12. PANTOPRAZOLE [Concomitant]
     Active Substance: PANTOPRAZOLE
     Indication: PROPHYLAXIS
     Dosage: 40 MILLIGRAM, QD
     Route: 048
     Dates: start: 20191016
  13. DEXAMETHASONE. [Concomitant]
     Active Substance: DEXAMETHASONE
     Indication: PRODUCT USED FOR UNKNOWN INDICATION
     Dosage: 8 MILLIGRAM, QD
     Route: 048
     Dates: start: 20191016
  14. PALBOCICLIB                        /08402602/ [Concomitant]
     Active Substance: PALBOCICLIB ISETHIONATE
     Indication: PRODUCT USED FOR UNKNOWN INDICATION
     Dosage: UNK
     Route: 065
  15. NOVAMINSULFON [Concomitant]
     Active Substance: METAMIZOLE
     Indication: PRODUCT USED FOR UNKNOWN INDICATION
     Dosage: 500 MG, QD
     Route: 048
     Dates: start: 20191016

REACTIONS (25)
  - Diarrhoea [Recovered/Resolved]
  - Thrombocytopenia [Recovered/Resolved]
  - Fatigue [Unknown]
  - Pleural effusion [Unknown]
  - Acute hepatic failure [Unknown]
  - Nausea [Recovered/Resolved]
  - Haemoglobin decreased [Unknown]
  - Ascites [Unknown]
  - Vomiting [Recovered/Resolved]
  - Pancytopenia [Recovered/Resolved]
  - Liver function test increased [Recovering/Resolving]
  - Abdominal wall cyst [Unknown]
  - Pyrexia [Recovered/Resolved]
  - Pruritus [Recovered/Resolved]
  - General physical health deterioration [Recovered/Resolved]
  - Hepatic cyst [Unknown]
  - White blood cell disorder [Recovered/Resolved]
  - Rash [Recovered/Resolved]
  - Hypersensitivity [Recovered/Resolved]
  - Ovarian cancer [Unknown]
  - Second primary malignancy [Unknown]
  - Retroperitoneal cancer [Unknown]
  - Peritoneal neoplasm [Unknown]
  - Thrombosis [Recovering/Resolving]
  - Dysphagia [Recovered/Resolved]

NARRATIVE: CASE EVENT DATE: 20191112
